FAERS Safety Report 16798096 (Version 1)
Quarter: 2019Q3

REPORT INFORMATION
  Report Type: Report from Study
  Country: JP (occurrence: JP)
  Receive Date: 20190912
  Receipt Date: 20190912
  Transmission Date: 20191005
  Serious: Yes (Death, Life-Threatening)
  Sender: FDA-Public Use
  Company Number: JP-ACTELION-A-CH2019-188640

PATIENT
  Age: 84 Year
  Sex: Female

DRUGS (15)
  1. PARIET [Concomitant]
     Active Substance: RABEPRAZOLE SODIUM
  2. LASIX [Concomitant]
     Active Substance: FUROSEMIDE
  3. GASMOTIN [Concomitant]
     Active Substance: MOSAPRIDE CITRATE
  4. LUPRAC [Concomitant]
     Active Substance: TORSEMIDE
  5. REVATIO [Suspect]
     Active Substance: SILDENAFIL CITRATE
     Indication: PULMONARY ARTERIAL HYPERTENSION
     Dosage: 20 MG, TID
     Route: 048
  6. DIART [Concomitant]
     Active Substance: AZOSEMIDE
  7. MAGMITT [Concomitant]
     Active Substance: MAGNESIUM OXIDE
  8. SAMSCA [Concomitant]
     Active Substance: TOLVAPTAN
  9. OPSUMIT [Suspect]
     Active Substance: MACITENTAN
     Indication: PULMONARY ARTERIAL HYPERTENSION
     Dosage: 10 MG, OD
     Route: 048
     Dates: start: 20181022, end: 20181031
  10. PIMOBENDAN [Concomitant]
     Active Substance: PIMOBENDAN
  11. FERROUS SULFATE. [Concomitant]
     Active Substance: FERROUS SULFATE
  12. ELIQUIS [Concomitant]
     Active Substance: APIXABAN
  13. FEBURIC [Concomitant]
     Active Substance: FEBUXOSTAT
  14. URSO [Concomitant]
     Active Substance: URSODIOL
  15. OXYGEN. [Concomitant]
     Active Substance: OXYGEN

REACTIONS (7)
  - Haemodynamic instability [Fatal]
  - Blood creatinine increased [Not Recovered/Not Resolved]
  - Blood pressure decreased [Fatal]
  - Blood urea increased [Not Recovered/Not Resolved]
  - Drug ineffective [Unknown]
  - Cardiac failure chronic [Fatal]
  - Renal impairment [Not Recovered/Not Resolved]

NARRATIVE: CASE EVENT DATE: 20181031
